FAERS Safety Report 9817698 (Version 1)
Quarter: 2014Q1

REPORT INFORMATION
  Report Type: Spontaneous
  Country: FR (occurrence: FR)
  Receive Date: 20140115
  Receipt Date: 20140115
  Transmission Date: 20141002
  Serious: Yes (Life-Threatening, Hospitalization, Other)
  Sender: FDA-Public Use
  Company Number: FR-ELI_LILLY_AND_COMPANY-FR201401003149

PATIENT
  Age: 0 Day
  Sex: Female
  Weight: 3.6 kg

DRUGS (1)
  1. ZYPREXA [Suspect]
     Indication: SCHIZOPHRENIA
     Dosage: 10 MG, QD
     Route: 064
     Dates: start: 201303, end: 20131212

REACTIONS (6)
  - Apnoea neonatal [Recovered/Resolved]
  - Cyanosis neonatal [Recovered/Resolved]
  - Hypoventilation neonatal [Recovered/Resolved]
  - Hypotonia neonatal [Recovered/Resolved]
  - Congenital infection [Recovering/Resolving]
  - Foetal exposure during pregnancy [Recovered/Resolved]
